FAERS Safety Report 5198761-X (Version None)
Quarter: 2007Q1

REPORT INFORMATION
  Report Type: 
  Country: None (occurrence: None)
  Receive Date: 20070104
  Receipt Date: 20070103
  Transmission Date: 20070707
  Serious: Yes (Other)
  Sender: FDA-Public Use
  Company Number: EG-GLAXOSMITHKLINE-B0449250A

PATIENT
  Age: 24 Year
  Sex: Male

DRUGS (1)
  1. ZEFFIX [Suspect]
     Indication: DRUG USE FOR UNKNOWN INDICATION
     Route: 065

REACTIONS (3)
  - LEUKOPENIA [None]
  - NEUTROPENIA [None]
  - SPLENOMEGALY [None]
